FAERS Safety Report 21026540 (Version 1)
Quarter: 2022Q2

REPORT INFORMATION
  Report Type: Spontaneous
  Country: US (occurrence: None)
  Receive Date: 20220629
  Receipt Date: 20220629
  Transmission Date: 20220721
  Serious: No
  Sender: FDA-Public Use
  Company Number: None

PATIENT
  Age: 47 Year
  Sex: Male

DRUGS (1)
  1. HUMIRA [Suspect]
     Active Substance: ADALIMUMAB
     Indication: Hidradenitis
     Dosage: INJECTE 160MG (2 PENS) SUBCUTANEOUSLY ON DAY 1, 80MG (1 PEN) ON DAY 15,  TEN 80MG EVERY OTHER WEEK
     Route: 058
     Dates: start: 202205

REACTIONS (2)
  - Rhinorrhoea [None]
  - Sinus disorder [None]
